FAERS Safety Report 9845268 (Version 2)
Quarter: 2014Q1

REPORT INFORMATION
  Report Type: Spontaneous
  Country: US (occurrence: None)
  Receive Date: 20140122
  Receipt Date: 20140131
  Transmission Date: 20141002
  Serious: Yes (Hospitalization)
  Sender: FDA-Public Use
  Company Number: UTC-043379

PATIENT
  Age: 57 Year
  Sex: Female
  Weight: 86.4 kg

DRUGS (3)
  1. REMODULIN [Suspect]
     Indication: PULMONARY ARTERIAL HYPERTENSION
     Dosage: 216 UG/KG (0.15 UG/KG, 1 IN 1 MIN)
     Route: 058
     Dates: start: 20130523
  2. LETAIRIS (AMBRISENTAN) (TABLETS) [Concomitant]
  3. ASPIRIN (ACETYLSALICYLIC ACID) (ACETYLSALICYLIC ACID) [Suspect]
     Indication: PRODUCT USED FOR UNKNOWN INDICATION

REACTIONS (4)
  - Blood disorder [None]
  - Dyspnoea [None]
  - Gastrointestinal haemorrhage [None]
  - Anaemia [None]
